FAERS Safety Report 4463428-X (Version None)
Quarter: 2004Q3

REPORT INFORMATION
  Report Type: 
  Country: None (occurrence: None)
  Receive Date: 20040928
  Receipt Date: 20040910
  Transmission Date: 20050211
  Serious: Yes (Other)
  Sender: FDA-Public Use
  Company Number: DSA_24973_2004

PATIENT
  Age: 49 Year
  Sex: Male
  Weight: 106.5953 kg

DRUGS (5)
  1. LORAZEPAM [Suspect]
     Indication: BLOOD GLUCOSE DECREASED
     Dosage: 0.5 MG PO
     Route: 048
     Dates: start: 20011001, end: 20011020
  2. LORAZEPAM [Suspect]
     Indication: HEADACHE
     Dosage: 0.5 MG PO
     Route: 048
     Dates: start: 20011001, end: 20011020
  3. LORAZEPAM [Suspect]
     Indication: INSOMNIA
     Dosage: 0.5 MG PO
     Route: 048
     Dates: start: 20011001, end: 20011020
  4. AMBIEN [Suspect]
     Indication: INSOMNIA
     Dosage: 10 MG Q DAY
     Dates: start: 20011016, end: 20011020
  5. METFORMIN [Concomitant]

REACTIONS (3)
  - ABNORMAL BEHAVIOUR [None]
  - PSYCHOTIC DISORDER [None]
  - THINKING ABNORMAL [None]
